FAERS Safety Report 11131444 (Version 2)
Quarter: 2015Q2

REPORT INFORMATION
  Report Type: Spontaneous
  Country: US (occurrence: US)
  Receive Date: 20150522
  Receipt Date: 20150615
  Transmission Date: 20150821
  Serious: Yes (Hospitalization, Disabling, Other)
  Sender: FDA-Public Use
  Company Number: US-009507513-1204USA00563

PATIENT
  Sex: Female
  Weight: 78.91 kg

DRUGS (9)
  1. LANSOPRAZOLE. [Concomitant]
     Active Substance: LANSOPRAZOLE
     Dosage: UNK
     Dates: start: 2004
  2. IBANDRONATE SODIUM. [Suspect]
     Active Substance: IBANDRONATE SODIUM
     Route: 048
  3. BONIVA [Suspect]
     Active Substance: IBANDRONATE SODIUM
     Indication: OSTEOPENIA
  4. FOSAMAX [Suspect]
     Active Substance: ALENDRONATE SODIUM
     Indication: OSTEOPENIA
  5. ACTONEL [Suspect]
     Active Substance: RISEDRONATE SODIUM
     Indication: OSTEOPENIA
  6. FOSAMAX [Suspect]
     Active Substance: ALENDRONATE SODIUM
     Indication: OSTEOPOROSIS
     Dosage: 70 MG, QW
     Route: 048
     Dates: start: 2003, end: 2004
  7. ACTONEL [Suspect]
     Active Substance: RISEDRONATE SODIUM
     Indication: OSTEOPOROSIS
     Dosage: 70 MG, QW
     Route: 048
     Dates: start: 2004, end: 200501
  8. PREVACID [Concomitant]
     Active Substance: LANSOPRAZOLE
     Dosage: UNK
     Dates: start: 2004
  9. BONIVA [Suspect]
     Active Substance: IBANDRONATE SODIUM
     Indication: OSTEOPOROSIS
     Dosage: 70 MG, QW
     Route: 048
     Dates: start: 200511, end: 20110728

REACTIONS (20)
  - Femur fracture [Not Recovered/Not Resolved]
  - Haemorrhagic anaemia [Unknown]
  - Hypertension [Recovered/Resolved]
  - Hypothyroidism [Unknown]
  - Osteoarthritis [Unknown]
  - Dyspepsia [Unknown]
  - Low turnover osteopathy [Not Recovered/Not Resolved]
  - Bone disorder [Not Recovered/Not Resolved]
  - Seborrhoeic keratosis [Unknown]
  - Gastrooesophageal reflux disease [Unknown]
  - Poor quality sleep [Unknown]
  - Hyperglycaemia [Recovered/Resolved]
  - Stress fracture [Not Recovered/Not Resolved]
  - Diabetes mellitus [Unknown]
  - Skin disorder [Unknown]
  - Hip arthroplasty [Unknown]
  - Osteoporosis [Not Recovered/Not Resolved]
  - Vitamin D deficiency [Unknown]
  - Drug intolerance [Unknown]
  - Tonsillectomy [Unknown]

NARRATIVE: CASE EVENT DATE: 2005
